FAERS Safety Report 13773240 (Version 4)
Quarter: 2019Q4

REPORT INFORMATION
  Report Type: Spontaneous
  Country: US (occurrence: US)
  Receive Date: 20170720
  Receipt Date: 20191022
  Transmission Date: 20200122
  Serious: Yes (Other)
  Sender: FDA-Public Use
  Company Number: US-PFIZER INC-2017315712

PATIENT
  Age: 53 Year

DRUGS (4)
  1. VIAGRA [Suspect]
     Active Substance: SILDENAFIL CITRATE
     Indication: ERECTILE DYSFUNCTION
     Dosage: UNK, (2 PILL SAMPLE PACK)
     Dates: start: 2004
  2. VIAGRA [Suspect]
     Active Substance: SILDENAFIL CITRATE
     Dosage: 100 MG, 3 TIMES PER MONTH
     Route: 048
     Dates: start: 20120105, end: 20161014
  3. VARDENAFIL [Concomitant]
     Active Substance: VARDENAFIL HYDROCHLORIDE
     Indication: ERECTILE DYSFUNCTION
     Dosage: 10 MG, (4 PER MONTH)
     Dates: start: 20111024, end: 20121024
  4. VIAGRA [Suspect]
     Active Substance: SILDENAFIL CITRATE
     Dosage: 50 MG, 3 TIMES PER MONTH
     Route: 048
     Dates: start: 20120105, end: 20161014

REACTIONS (1)
  - Malignant melanoma [Unknown]

NARRATIVE: CASE EVENT DATE: 20141020
